FAERS Safety Report 10371959 (Version 1)
Quarter: 2014Q3

REPORT INFORMATION
  Report Type: Spontaneous
  Country: KR (occurrence: KR)
  Receive Date: 20140808
  Receipt Date: 20140808
  Transmission Date: 20150326
  Serious: Yes (Life-Threatening, Hospitalization)
  Sender: FDA-Public Use
  Company Number: KR-BAYER-2014-115146

PATIENT
  Age: 5 Year
  Sex: Male

DRUGS (1)
  1. GADOVIST [Suspect]
     Active Substance: GADOBUTROL
     Indication: NUCLEAR MAGNETIC RESONANCE IMAGING
     Dosage: 3 ML, ONCE
     Route: 042
     Dates: start: 20140731, end: 20140731

REACTIONS (7)
  - Pulmonary oedema [Recovered/Resolved with Sequelae]
  - Pallor [None]
  - Vomiting [None]
  - Abdominal pain [None]
  - Asthenia [None]
  - Headache [None]
  - Dizziness [None]

NARRATIVE: CASE EVENT DATE: 20140731
